FAERS Safety Report 9075926 (Version 1)
Quarter: 2013Q1

REPORT INFORMATION
  Report Type: Report from Study
  Country: GB (occurrence: GB)
  Receive Date: 20130201
  Receipt Date: 20130201
  Transmission Date: 20140127
  Serious: Yes (Hospitalization)
  Sender: FDA-Public Use
  Company Number: GB-US-EMD SERONO, INC.-7190703

PATIENT
  Sex: Female

DRUGS (9)
  1. PARACETAMOL [Concomitant]
     Indication: PRODUCT USED FOR UNKNOWN INDICATION
  2. BETAHISTINE [Concomitant]
     Indication: PRODUCT USED FOR UNKNOWN INDICATION
  3. ESOMETRAZOLE (ESOMEPRAZOLE) [Concomitant]
     Indication: PRODUCT USED FOR UNKNOWN INDICATION
  4. AMITRYPTILLINE (AMITRIPTYLINE) [Concomitant]
     Indication: PRODUCT USED FOR UNKNOWN INDICATION
  5. VASICAIR [Concomitant]
     Indication: PRODUCT USED FOR UNKNOWN INDICATION
  6. BEDRONOL (BEDRANO) [Concomitant]
     Indication: PRODUCT USED FOR UNKNOWN INDICATION
  7. DOMPERIDONE [Concomitant]
     Indication: PRODUCT USED FOR UNKNOWN INDICATION
  8. ALOMOTRIPTAN (ALMOTRIPTAN) [Concomitant]
     Indication: PRODUCT USED FOR UNKNOWN INDICATION
  9. REBIF [Suspect]
     Indication: PRODUCT USED FOR UNKNOWN INDICATION
     Route: 058
     Dates: start: 20041221

REACTIONS (1)
  - Hysterectomy [Unknown]
